FAERS Safety Report 21668873 (Version 2)
Quarter: 2023Q1

REPORT INFORMATION
  Report Type: Report from Study
  Country: US (occurrence: US)
  Receive Date: 20221201
  Receipt Date: 20230123
  Transmission Date: 20230417
  Serious: No
  Sender: FDA-Public Use
  Company Number: US-ABBVIE-21K-163-4100162-00

PATIENT
  Age: 64 Year
  Sex: Female

DRUGS (11)
  1. IMBRUVICA [Suspect]
     Active Substance: IBRUTINIB
     Indication: Waldenstrom^s macroglobulinaemia
     Route: 048
     Dates: start: 20200911
  2. IMBRUVICA [Suspect]
     Active Substance: IBRUTINIB
     Indication: Waldenstrom^s macroglobulinaemia
     Route: 048
  3. IMBRUVICA [Suspect]
     Active Substance: IBRUTINIB
     Indication: Waldenstrom^s macroglobulinaemia
     Route: 048
  4. IMBRUVICA [Suspect]
     Active Substance: IBRUTINIB
     Indication: Waldenstrom^s macroglobulinaemia
     Route: 048
     Dates: start: 20200912
  5. IMBRUVICA [Suspect]
     Active Substance: IBRUTINIB
     Indication: Waldenstrom^s macroglobulinaemia
     Route: 048
  6. IMBRUVICA [Suspect]
     Active Substance: IBRUTINIB
     Indication: Waldenstrom^s macroglobulinaemia
     Route: 048
     Dates: start: 20220911
  7. BIOTIN [Concomitant]
     Active Substance: BIOTIN
     Indication: Hair disorder
     Dosage: OVER THE COUNTER
     Route: 048
  8. PFIZER-BIONTECH COVID-19 VACCINE [Concomitant]
     Active Substance: TOZINAMERAN
     Indication: COVID-19 immunisation
     Dosage: TIME INTERVAL: 1 TOTAL: DOSE 1
     Route: 030
     Dates: start: 20210316, end: 20210316
  9. PFIZER-BIONTECH COVID-19 VACCINE [Concomitant]
     Active Substance: TOZINAMERAN
     Indication: COVID-19 immunisation
     Dosage: TIME INTERVAL: 1 TOTAL: DOSE 2
     Route: 030
     Dates: start: 20210406, end: 20210406
  10. PFIZER-BIONTECH COVID-19 VACCINE [Concomitant]
     Active Substance: TOZINAMERAN
     Indication: COVID-19 immunisation
     Dosage: TIME INTERVAL: 1 TOTAL: BOOSTER DOSE
     Route: 030
     Dates: start: 20210917, end: 20210917
  11. PFIZER-BIONTECH COVID-19 VACCINE [Concomitant]
     Active Substance: TOZINAMERAN
     Indication: COVID-19 immunisation
     Dosage: TIME INTERVAL: 1 TOTAL: FOURTH DOSE
     Route: 030

REACTIONS (32)
  - Eczema [Unknown]
  - Blood immunoglobulin M decreased [Unknown]
  - Skin disorder [Not Recovered/Not Resolved]
  - Stress [Unknown]
  - Alopecia [Recovered/Resolved]
  - Onychalgia [Not Recovered/Not Resolved]
  - Skin fissures [Not Recovered/Not Resolved]
  - Dry skin [Not Recovered/Not Resolved]
  - Blood immunoglobulin M increased [Unknown]
  - Haemorrhage [Unknown]
  - Oral mucosal exfoliation [Recovered/Resolved]
  - Eye irritation [Not Recovered/Not Resolved]
  - Dermatitis contact [Unknown]
  - Blood cholesterol increased [Unknown]
  - Osteopenia [Unknown]
  - Pain [Unknown]
  - Nail bed bleeding [Unknown]
  - Nail discolouration [Unknown]
  - Thyroid function test abnormal [Unknown]
  - Back injury [Recovering/Resolving]
  - Bone loss [Unknown]
  - Joint swelling [Recovering/Resolving]
  - Onychoclasis [Not Recovered/Not Resolved]
  - Gastrooesophageal reflux disease [Recovering/Resolving]
  - Onychomycosis [Unknown]
  - Muscle spasms [Not Recovered/Not Resolved]
  - Fall [Recovering/Resolving]
  - Fungal foot infection [Unknown]
  - Infection [Unknown]
  - Wound haemorrhage [Unknown]
  - Dry eye [Not Recovered/Not Resolved]
  - Nail disorder [Not Recovered/Not Resolved]

NARRATIVE: CASE EVENT DATE: 20220118
